FAERS Safety Report 13653075 (Version 1)
Quarter: 2017Q2

REPORT INFORMATION
  Report Type: Spontaneous
  Country: US (occurrence: US)
  Receive Date: 20170614
  Receipt Date: 20170614
  Transmission Date: 20170830
  Serious: No
  Sender: FDA-Public Use
  Company Number: US-ROCHE-1230839

PATIENT
  Sex: Female

DRUGS (3)
  1. XELODA [Suspect]
     Active Substance: CAPECITABINE
     Indication: COLORECTAL CANCER
     Dosage: 2 WEEKS ON AND 1 WEEK OFF
     Route: 048
     Dates: start: 20130301
  2. HYDROCODONE HCL [Concomitant]
  3. XANAX [Concomitant]
     Active Substance: ALPRAZOLAM

REACTIONS (5)
  - Eye irritation [Unknown]
  - Neuropathy peripheral [Unknown]
  - Rash [Unknown]
  - Photophobia [Unknown]
  - Diarrhoea [Unknown]
